FAERS Safety Report 4724863-5 (Version None)
Quarter: 2005Q3

REPORT INFORMATION
  Report Type: 
  Country: None (occurrence: None)
  Receive Date: 20050720
  Receipt Date: 20050720
  Transmission Date: 20060218
  Serious: Yes (Life-Threatening)
  Sender: FDA-Public Use
  Company Number: None

PATIENT
  Age: 62 Year
  Sex: Female

DRUGS (4)
  1. GATIFLOXACIN [Suspect]
     Indication: SEPSIS
     Dosage: 400 MG  DAILY  INTRAVENOU
     Route: 042
     Dates: start: 20041111, end: 20041115
  2. GATIFLOXACIN [Suspect]
     Indication: URINARY TRACT INFECTION
     Dosage: 400 MG  DAILY  INTRAVENOU
     Route: 042
     Dates: start: 20041111, end: 20041115
  3. GLIPIZIDE [Concomitant]
  4. REGULAR INSULIN [Concomitant]

REACTIONS (1)
  - HYPOGLYCAEMIA [None]
